FAERS Safety Report 4423575-5 (Version None)
Quarter: 2004Q3

REPORT INFORMATION
  Report Type: 
  Country: None (occurrence: None)
  Receive Date: 20040714
  Receipt Date: 20040225
  Transmission Date: 20050211
  Serious: Yes (Hospitalization)
  Sender: FDA-Public Use
  Company Number: 200411491US

PATIENT
  Sex: Female

DRUGS (3)
  1. TAXOTERE [Suspect]
  2. DOXORUBICIN HCL [Concomitant]
  3. CYTOXAN [Concomitant]

REACTIONS (1)
  - DIARRHOEA [None]
